FAERS Safety Report 23141544 (Version 1)
Quarter: 2023Q4

REPORT INFORMATION
  Report Type: Spontaneous
  Country: JP (occurrence: JP)
  Receive Date: 20231103
  Receipt Date: 20231103
  Transmission Date: 20240110
  Serious: Yes (Other)
  Sender: FDA-Public Use
  Company Number: JP-AMGEN-JPNSP2023173139

PATIENT
  Sex: Male

DRUGS (3)
  1. OTEZLA [Suspect]
     Active Substance: APREMILAST
     Indication: Psoriasis
     Dosage: 10 MILLIGRAM
     Route: 048
     Dates: start: 20230926, end: 20230928
  2. ENTECAVIR [Concomitant]
     Active Substance: ENTECAVIR
     Dosage: UNK
  3. BENZBROMARONE [Concomitant]
     Active Substance: BENZBROMARONE
     Dosage: UNK

REACTIONS (6)
  - Depressed level of consciousness [Recovering/Resolving]
  - Malaise [Recovering/Resolving]
  - Vertigo [Unknown]
  - Decreased appetite [Recovering/Resolving]
  - Abdominal pain [Recovering/Resolving]
  - Headache [Recovering/Resolving]

NARRATIVE: CASE EVENT DATE: 20230901
